FAERS Safety Report 18825354 (Version 3)
Quarter: 2021Q1

REPORT INFORMATION
  Report Type: Other
  Country: CA (occurrence: CA)
  Receive Date: 20210202
  Receipt Date: 20210329
  Transmission Date: 20210419
  Serious: Yes (Other)
  Sender: FDA-Public Use
  Company Number: CA-ROCHE-2663594

PATIENT
  Age: 35 Year
  Sex: Female

DRUGS (1)
  1. OCREVUS [Suspect]
     Active Substance: OCRELIZUMAB
     Indication: RELAPSING-REMITTING MULTIPLE SCLEROSIS
     Dosage: DAY 0, 14 THEN 600 MG Q 6 M ;300 MG AT DAY 0 AND 14, THEN 600 MG EVERY 6 MONTH
     Route: 042
     Dates: start: 20190809

REACTIONS (17)
  - Diarrhoea [Not Recovered/Not Resolved]
  - Headache [Not Recovered/Not Resolved]
  - Insomnia [Not Recovered/Not Resolved]
  - SARS-CoV-2 test positive [Recovered/Resolved]
  - Tooth disorder [Not Recovered/Not Resolved]
  - Hepatic pain [Recovered/Resolved]
  - Vomiting [Recovered/Resolved]
  - Micturition urgency [Not Recovered/Not Resolved]
  - Affect lability [Not Recovered/Not Resolved]
  - Neck pain [Unknown]
  - Nausea [Not Recovered/Not Resolved]
  - Anxiety [Not Recovered/Not Resolved]
  - Oropharyngeal pain [Not Recovered/Not Resolved]
  - Back pain [Unknown]
  - Fatigue [Not Recovered/Not Resolved]
  - Impatience [Not Recovered/Not Resolved]
  - Memory impairment [Not Recovered/Not Resolved]

NARRATIVE: CASE EVENT DATE: 20200628
